FAERS Safety Report 7986779-0 (Version None)
Quarter: 2011Q4

REPORT INFORMATION
  Report Type: 
  Country: None (occurrence: None)
  Receive Date: 20111216
  Receipt Date: 20110224
  Transmission Date: 20120403
  Serious: No
  Sender: FDA-Public Use
  Company Number: US-BRISTOL-MYERS SQUIBB COMPANY-15570054

PATIENT
  Age: 4 Decade
  Sex: Female

DRUGS (1)
  1. ABILIFY [Suspect]
     Dosage: INITIAL:10 MG, THEN INCREASED TO 15 MG, DOSE REDUCED TO 10 MG.

REACTIONS (1)
  - SWOLLEN TONGUE [None]
